FAERS Safety Report 11779072 (Version 1)
Quarter: 2015Q4

REPORT INFORMATION
  Report Type: Spontaneous
  Country: GB (occurrence: GB)
  Receive Date: 20151125
  Receipt Date: 20151125
  Transmission Date: 20160304
  Serious: Yes (Hospitalization)
  Sender: FDA-Public Use
  Company Number: GB-BANPHARM-20154406

PATIENT
  Age: 70 Year
  Sex: Male
  Weight: 72 kg

DRUGS (5)
  1. IBUPROFEN UNKNOWN PRODUCT [Suspect]
     Active Substance: IBUPROFEN
     Dosage: 400 MG, 3 DF, QD,
     Dates: start: 20150714
  2. CO-AMOXICLAV [Suspect]
     Active Substance: AMOXICILLIN\CLAVULANIC ACID
     Indication: EPIDIDYMITIS
     Dates: start: 20150714, end: 20150801
  3. ANTIBIOTICS [Suspect]
     Active Substance: UNSPECIFIED INGREDIENT
     Indication: EPIDIDYMITIS
     Route: 042
     Dates: start: 20150712, end: 20150714
  4. OMEPRAZOLE. [Suspect]
     Active Substance: OMEPRAZOLE
     Dosage: 20 MG, QD,
     Dates: start: 20150714
  5. ANALGESIC [Suspect]
     Active Substance: UNSPECIFIED INGREDIENT
     Indication: EPIDIDYMITIS
     Route: 042
     Dates: start: 20150712, end: 20150714

REACTIONS (9)
  - Dyspnoea [Recovering/Resolving]
  - Rash [Recovering/Resolving]
  - Haemoglobin decreased [Recovering/Resolving]
  - Bacteraemia [Recovering/Resolving]
  - Night sweats [Recovering/Resolving]
  - Pain in extremity [Recovering/Resolving]
  - Lethargy [Recovering/Resolving]
  - Pyrexia [Recovering/Resolving]
  - Liver function test abnormal [Recovering/Resolving]
